FAERS Safety Report 8935462 (Version 1)
Quarter: 2012Q4

REPORT INFORMATION
  Report Type: Spontaneous
  Country: IT (occurrence: None)
  Receive Date: 20121121
  Receipt Date: 20121121
  Transmission Date: 20130627
  Serious: Yes (Hospitalization)
  Sender: FDA-Public Use
  Company Number: AXC-2012-000546

PATIENT
  Age: 50 Year
  Sex: Male

DRUGS (3)
  1. NITROGLYCERIN [Suspect]
     Indication: ANAL INFLAMMATION
     Route: 054
     Dates: start: 20121011, end: 20121011
  2. PANTOPAN [Concomitant]
  3. LEVOFLOXACIN (LEVOFLOXACIN) [Concomitant]

REACTIONS (6)
  - Syncope [None]
  - Hyperhidrosis [None]
  - Headache [None]
  - Tachycardia [None]
  - Hot flush [None]
  - Dizziness [None]
